FAERS Safety Report 6204787-7 (Version None)
Quarter: 2009Q2

REPORT INFORMATION
  Report Type: 
  Country: None (occurrence: None)
  Receive Date: 20090527
  Receipt Date: 20090515
  Transmission Date: 20091009
  Serious: Yes (Hospitalization)
  Sender: FDA-Public Use
  Company Number: JP-PFIZER INC-2009164481

PATIENT
  Age: 59 Year

DRUGS (5)
  1. ZITHROMAX [Suspect]
     Indication: PNEUMONIA PRIMARY ATYPICAL
     Dosage: UNK
     Route: 048
     Dates: start: 20090119, end: 20090128
  2. MARZULENE [Concomitant]
     Route: 048
     Dates: start: 20090116
  3. MEDICON [Concomitant]
     Route: 048
     Dates: start: 20090119
  4. LOXOPROFEN SODIUM [Concomitant]
     Route: 048
     Dates: start: 20090119
  5. MEPTIN [Concomitant]
     Route: 048
     Dates: start: 20090124

REACTIONS (1)
  - INTERSTITIAL LUNG DISEASE [None]
